FAERS Safety Report 7261496-3 (Version None)
Quarter: 2011Q1

REPORT INFORMATION
  Report Type: 
  Country: None (occurrence: None)
  Receive Date: 20110130
  Receipt Date: 20100922
  Transmission Date: 20110831
  Serious: No
  Sender: FDA-Public Use
  Company Number: US-ABBOTT-10P-163-0672495-00

PATIENT
  Age: 48 Year
  Sex: Female

DRUGS (5)
  1. HUMIRA [Suspect]
     Dates: start: 20100922
  2. DARVOCET-N 100 [Concomitant]
     Indication: ARTHRALGIA
     Dosage: 100/650 DAILY
  3. FLEXERIL [Concomitant]
     Indication: RHEUMATOID ARTHRITIS
  4. AMBIEN [Concomitant]
     Indication: INSOMNIA
  5. HUMIRA [Suspect]
     Indication: RHEUMATOID ARTHRITIS
     Dates: start: 20060901, end: 20100701

REACTIONS (2)
  - DIARRHOEA [None]
  - ANAL FISSURE [None]
